FAERS Safety Report 5482435-1 (Version None)
Quarter: 2007Q4

REPORT INFORMATION
  Report Type: 
  Country: None (occurrence: None)
  Receive Date: 20071011
  Receipt Date: 20071002
  Transmission Date: 20080405
  Serious: Yes (Hospitalization)
  Sender: FDA-Public Use
  Company Number: US-JNJFOC-20071001234

PATIENT
  Sex: Female
  Weight: 87.09 kg

DRUGS (4)
  1. REMICADE [Suspect]
     Route: 042
  2. REMICADE [Suspect]
     Route: 042
  3. REMICADE [Suspect]
     Indication: RHEUMATOID ARTHRITIS
     Dosage: DOSAGE RECEIVED IS 4 VIALS
     Route: 042
  4. METHOTREXATE [Concomitant]

REACTIONS (1)
  - GALLBLADDER PAIN [None]
